FAERS Safety Report 5292436-4 (Version None)
Quarter: 2007Q2

REPORT INFORMATION
  Report Type: 
  Country: None (occurrence: None)
  Receive Date: 20070410
  Receipt Date: 20070330
  Transmission Date: 20071010
  Serious: Yes (Other)
  Sender: FDA-Public Use
  Company Number: US-PFIZER INC-2006150998

PATIENT
  Sex: Male

DRUGS (12)
  1. SUTENT [Suspect]
     Indication: GASTROINTESTINAL STROMAL TUMOUR
     Dates: start: 20060619, end: 20060716
  2. SUTENT [Suspect]
     Dates: start: 20060731, end: 20060827
  3. SUTENT [Suspect]
     Dates: start: 20060911, end: 20061008
  4. GLEEVEC [Suspect]
     Indication: GASTROINTESTINAL STROMAL TUMOUR
     Dates: start: 20050913, end: 20060501
  5. ACETYLSALICYLIC ACID SRT [Concomitant]
  6. TYLENOL [Concomitant]
  7. LORAZEPAM [Concomitant]
  8. HYDROCHLOROTHIAZIDE [Concomitant]
     Dosage: DAILY DOSE:12.5MG
  9. PREDNISONE TAB [Concomitant]
  10. OXYCODONE HCL [Concomitant]
  11. TERAZOSIN HCL [Concomitant]
     Dosage: DAILY DOSE:5MG
  12. COMPAZINE [Concomitant]

REACTIONS (7)
  - BURNING SENSATION [None]
  - COMPUTERISED TOMOGRAM ABNORMAL [None]
  - DISEASE PROGRESSION [None]
  - DRUG INEFFECTIVE [None]
  - GASTROINTESTINAL STROMAL TUMOUR [None]
  - PULMONARY EMBOLISM [None]
  - SKIN EXFOLIATION [None]
